FAERS Safety Report 7715845-X (Version None)
Quarter: 2011Q3

REPORT INFORMATION
  Report Type: 
  Country: None (occurrence: None)
  Receive Date: 20110829
  Receipt Date: 20110829
  Transmission Date: 20111222
  Serious: Yes (Death)
  Sender: FDA-Public Use
  Company Number: None

PATIENT
  Sex: Female
  Weight: 81 kg

DRUGS (8)
  1. DICYCLOMINE [Concomitant]
  2. ASPIRIN [Concomitant]
  3. LORTAB [Concomitant]
  4. FLUCONAZOLE [Concomitant]
     Dates: start: 20110809, end: 20110812
  5. MULTI-VITAMIN [Concomitant]
  6. FLUCONAZOLE [Suspect]
     Indication: DERMATITIS
     Dosage: 150 MG
     Route: 048
     Dates: start: 20110728, end: 20110826
  7. COMBIVENT [Concomitant]
  8. BACTRIM [Concomitant]

REACTIONS (1)
  - CARDIO-RESPIRATORY ARREST [None]
